FAERS Safety Report 18076360 (Version 1)
Quarter: 2020Q3

REPORT INFORMATION
  Report Type: Report from Study
  Country: JP (occurrence: JP)
  Receive Date: 20200728
  Receipt Date: 20200728
  Transmission Date: 20201103
  Serious: Yes (Hospitalization)
  Sender: FDA-Public Use
  Company Number: JP-CELLTRION INC.-2020JP024604

PATIENT

DRUGS (7)
  1. CT?P13 [Suspect]
     Active Substance: INFLIXIMAB-DYYB
     Indication: COLITIS ULCERATIVE
     Dosage: 395 MG
     Route: 041
     Dates: start: 20181010, end: 20181010
  2. CT?P13 [Suspect]
     Active Substance: INFLIXIMAB-DYYB
     Dosage: 385 MG
     Route: 041
     Dates: start: 20191016, end: 20191016
  3. AZATHIOPRINE. [Concomitant]
     Active Substance: AZATHIOPRINE
     Dosage: 150MG/DAY
     Route: 048
     Dates: start: 20191016
  4. BUDESONIDE. [Concomitant]
     Active Substance: BUDESONIDE
     Indication: COLITIS ULCERATIVE
     Dosage: 4 MG/DAY
     Route: 054
     Dates: start: 20191016, end: 20191126
  5. AZATHIOPRINE. [Concomitant]
     Active Substance: AZATHIOPRINE
     Indication: COLITIS ULCERATIVE
     Dosage: 100MG/DAY
     Route: 048
     Dates: start: 20170201, end: 20190618
  6. MESALAZINE [Concomitant]
     Active Substance: MESALAMINE
     Dosage: 4000 MG/DAY
     Route: 048
     Dates: end: 20190416
  7. AZATHIOPRINE. [Concomitant]
     Active Substance: AZATHIOPRINE
     Dosage: 125 MG/DAY
     Route: 048
     Dates: start: 20190619, end: 20191015

REACTIONS (2)
  - Pneumothorax spontaneous [Recovered/Resolved]
  - Product use issue [Unknown]

NARRATIVE: CASE EVENT DATE: 20181220
